FAERS Safety Report 7304891-6 (Version None)
Quarter: 2011Q1

REPORT INFORMATION
  Report Type: 
  Country: None (occurrence: None)
  Receive Date: 20110222
  Receipt Date: 20110211
  Transmission Date: 20110831
  Serious: Yes (Hospitalization, Other)
  Sender: FDA-Public Use
  Company Number: CO-ELI_LILLY_AND_COMPANY-CO201102003692

PATIENT
  Age: 53 Year
  Sex: Male

DRUGS (10)
  1. BYETTA [Suspect]
     Indication: TYPE 2 DIABETES MELLITUS
     Dosage: 10 UG, 2/D
     Route: 058
     Dates: start: 20100728, end: 20110208
  2. METFORMIN [Concomitant]
     Indication: BLOOD GLUCOSE INCREASED
     Route: 048
  3. AMLODIPINE BESYLATE [Concomitant]
  4. ACETAMINOPHEN [Concomitant]
  5. OMEPRAZOLE [Concomitant]
  6. AMOXICILLIN [Concomitant]
  7. FOSINOPRIL SODIUM [Concomitant]
  8. FUROSEMIDE [Concomitant]
  9. METOPROLOL [Concomitant]
  10. ASPIRIN [Concomitant]

REACTIONS (2)
  - HOSPITALISATION [None]
  - ANGINA UNSTABLE [None]
